FAERS Safety Report 9885654 (Version 1)
Quarter: 2014Q1

REPORT INFORMATION
  Report Type: Spontaneous
  Country: IN (occurrence: None)
  Receive Date: 20140206
  Receipt Date: 20140206
  Transmission Date: 20141002
  Serious: Yes (Hospitalization)
  Sender: FDA-Public Use
  Company Number: 2014P1000573

PATIENT
  Age: 37 Year
  Sex: Female

DRUGS (1)
  1. DOXYCYCLINE [Suspect]

REACTIONS (1)
  - Drug eruption [None]
